FAERS Safety Report 8512766 (Version 3)
Quarter: 2013Q2

REPORT INFORMATION
  Report Type: Spontaneous
  Country: US (occurrence: US)
  Receive Date: 20120413
  Receipt Date: 20130502
  Transmission Date: 20140414
  Serious: No
  Sender: FDA-Public Use
  Company Number: US-ASTRAZENECA-2011SE59760

PATIENT
  Age: 65 Year
  Sex: Female

DRUGS (1)
  1. NEXIUM [Suspect]
     Route: 048

REACTIONS (6)
  - Fall [Unknown]
  - Skeletal injury [Unknown]
  - Nasopharyngitis [Unknown]
  - Sinus disorder [Unknown]
  - Discomfort [Unknown]
  - Drug dose omission [Unknown]
